FAERS Safety Report 13612998 (Version 2)
Quarter: 2017Q2

REPORT INFORMATION
  Report Type: Spontaneous
  Country: BG (occurrence: BG)
  Receive Date: 20170605
  Receipt Date: 20170614
  Transmission Date: 20170830
  Serious: Yes (Hospitalization)
  Sender: FDA-Public Use
  Company Number: BG-B.I. PHARMACEUTICALS,INC./RIDGEFIELD-2017-BI-030254

PATIENT
  Age: 77 Year
  Sex: Female
  Weight: 97 kg

DRUGS (8)
  1. NORVASC [Concomitant]
     Active Substance: AMLODIPINE BESYLATE
     Indication: HYPERTENSION
     Route: 065
  2. ISODINIT 2X10 MG [Concomitant]
     Indication: MYOCARDIAL ISCHAEMIA
     Dosage: DOSE: 2X10MG
     Route: 065
  3. JENTADUETO [Suspect]
     Active Substance: LINAGLIPTIN\METFORMIN HYDROCHLORIDE
     Indication: TYPE 2 DIABETES MELLITUS
     Dosage: STRENGTH: 2.5/850
     Route: 065
  4. MICARDIS PLUS X 1 TABLET [Concomitant]
     Indication: HYPERTENSION
     Route: 065
  5. GLUCOBAY 3X100 [Concomitant]
     Indication: TYPE 2 DIABETES MELLITUS
     Route: 065
  6. ATORIS 20 MG [Concomitant]
     Indication: DYSLIPIDAEMIA
     Route: 065
  7. CONCOR 5 MG [Concomitant]
     Indication: HYPERTENSION
     Route: 065
  8. CLOPIDOGREL 75 MG DAILY [Concomitant]
     Indication: ATRIAL FIBRILLATION
     Route: 065

REACTIONS (1)
  - Diabetic metabolic decompensation [Recovered/Resolved]
